FAERS Safety Report 8974988 (Version 2)
Quarter: 2013Q1

REPORT INFORMATION
  Report Type: Spontaneous
  Country: AT (occurrence: AT)
  Receive Date: 20121219
  Receipt Date: 20130107
  Transmission Date: 20140127
  Serious: Yes (Other)
  Sender: FDA-Public Use
  Company Number: AT-ALEXION PHARMACEUTICALS INC.-A201202449

PATIENT
  Age: 17 Year
  Sex: Male

DRUGS (1)
  1. SOLIRIS 300MG [Suspect]
     Indication: HAEMOLYTIC URAEMIC SYNDROME
     Dosage: 600 MG, UNK
     Route: 042

REACTIONS (3)
  - Renal failure chronic [Unknown]
  - Thrombotic microangiopathy [Unknown]
  - Condition aggravated [Unknown]
